FAERS Safety Report 10215934 (Version 1)
Quarter: 2014Q2

REPORT INFORMATION
  Report Type: Spontaneous
  Country: US (occurrence: None)
  Receive Date: 20140602
  Receipt Date: 20140602
  Transmission Date: 20141212
  Serious: Yes (Other)
  Sender: FDA-Public Use
  Company Number: 001740122A

PATIENT
  Age: 63 Year
  Sex: Female

DRUGS (2)
  1. MB* ANTIOXIDANT DAY CREME SPF 20 [Suspect]
     Dosage: ONCE DAILY DERMAL
     Dates: start: 20140326, end: 20140330
  2. MB* SKIN BRIGHTENING DECOLLETE + NECK TREATMENT SPF 15 [Suspect]
     Dosage: ONCE DAILY DERMAL
     Dates: start: 20140326, end: 20140330

REACTIONS (3)
  - Erythema [None]
  - Lip swelling [None]
  - Eye swelling [None]
